FAERS Safety Report 18128015 (Version 2)
Quarter: 2021Q3

REPORT INFORMATION
  Report Type: Spontaneous
  Country: US (occurrence: US)
  Receive Date: 20200810
  Receipt Date: 20210819
  Transmission Date: 20211014
  Serious: No
  Sender: FDA-Public Use
  Company Number: US-ALFASIGMA USA, INC.-2020US002904

PATIENT

DRUGS (12)
  1. LINZESS [Concomitant]
     Active Substance: LINACLOTIDE
     Dosage: 290 MCG, EVERY NIGHT
  2. ZYRTEC [Concomitant]
     Active Substance: CETIRIZINE HYDROCHLORIDE
     Dosage: UNK
  3. ZELNORM [Suspect]
     Active Substance: TEGASEROD MALEATE
     Indication: IRRITABLE BOWEL SYNDROME
     Dosage: 6 MG, DAILY
     Route: 048
     Dates: start: 201912
  4. MIRALAX [Concomitant]
     Active Substance: POLYETHYLENE GLYCOL 3350
     Dosage: 3?4 SCOOPS, DAILY
  5. MAGNESIUM [Concomitant]
     Active Substance: MAGNESIUM
     Dosage: 400 MG, DAILY
  6. MAGNESIUM OXY POWDER [Concomitant]
     Dosage: 2 DOSE, DAILY
  7. MIRALAX [Concomitant]
     Active Substance: POLYETHYLENE GLYCOL 3350
     Dosage: 3?4 SCOOPS, DAILY
  8. ZELNORM [Suspect]
     Active Substance: TEGASEROD MALEATE
     Dosage: 6 MG
     Dates: start: 20200514, end: 20200523
  9. GABAPENTIN. [Concomitant]
     Active Substance: GABAPENTIN
     Dosage: 300?400 MG, DAILY
  10. COMBIGAN D [Concomitant]
     Dosage: DAILY
  11. MAGNESIUM [Concomitant]
     Active Substance: MAGNESIUM
     Dosage: 400 MG, DAILY
  12. MAGNESIUM OXY POWDER [Concomitant]
     Dosage: 2 DOSE, DAILY

REACTIONS (5)
  - Malaise [Recovered/Resolved]
  - Incontinence [Not Recovered/Not Resolved]
  - Diarrhoea [Recovered/Resolved]
  - Drug ineffective [Recovered/Resolved]
  - Product quality issue [Recovered/Resolved]

NARRATIVE: CASE EVENT DATE: 20200514
